FAERS Safety Report 14976689 (Version 1)
Quarter: 2018Q2

REPORT INFORMATION
  Report Type: Spontaneous
  Country: US (occurrence: US)
  Receive Date: 20180515
  Receipt Date: 20180515
  Transmission Date: 20180711
  Serious: Yes (Hospitalization)
  Sender: FDA-Public Use
  Company Number: None

PATIENT
  Age: 78 Year
  Sex: Male
  Weight: 90.2 kg

DRUGS (2)
  1. LEUPROLIDE ACETATE. [Concomitant]
     Active Substance: LEUPROLIDE ACETATE
     Dates: end: 20180201
  2. CASODEX [Suspect]
     Active Substance: BICALUTAMIDE
     Dates: end: 20180429

REACTIONS (9)
  - Hyponatraemia [None]
  - Cholecystitis acute [None]
  - Diarrhoea [None]
  - Dehydration [None]
  - Dysuria [None]
  - Sepsis [None]
  - Cholelithiasis [None]
  - Urinary tract infection [None]
  - Tachycardia [None]

NARRATIVE: CASE EVENT DATE: 20180429
